FAERS Safety Report 7360091-5 (Version None)
Quarter: 2011Q1

REPORT INFORMATION
  Report Type: 
  Country: None (occurrence: None)
  Receive Date: 20110318
  Receipt Date: 20110310
  Transmission Date: 20110831
  Serious: Yes (Hospitalization)
  Sender: FDA-Public Use
  Company Number: US-BIOGENIDEC-2010BI043438

PATIENT
  Age: 64 Year
  Sex: Female
  Weight: 103 kg

DRUGS (3)
  1. ARTHROTEC [Concomitant]
     Indication: BACK DISORDER
  2. AMPYRA [Concomitant]
     Indication: GAIT DISTURBANCE
     Dates: start: 20100701
  3. TYSABRI [Suspect]
     Indication: MULTIPLE SCLEROSIS
     Route: 042
     Dates: start: 20100604

REACTIONS (5)
  - SKELETAL INJURY [None]
  - STRESS FRACTURE [None]
  - CHONDROPATHY [None]
  - ARTHRALGIA [None]
  - SYNCOPE [None]
